FAERS Safety Report 8124460-8 (Version None)
Quarter: 2012Q1

REPORT INFORMATION
  Report Type: 
  Country: None (occurrence: None)
  Receive Date: 20120209
  Receipt Date: 20120202
  Transmission Date: 20120608
  Serious: Yes (Other)
  Sender: FDA-Public Use
  Company Number: BR-BAYER-2012-011374

PATIENT
  Sex: Female

DRUGS (2)
  1. ACETYLCYSTEINE [Concomitant]
     Indication: NASOPHARYNGITIS
     Dosage: 1 DF, QD
  2. AVELOX [Suspect]
     Indication: SINUSITIS
     Dosage: UNK
     Route: 048
     Dates: start: 20120202

REACTIONS (7)
  - DRY MOUTH [None]
  - SPEECH DISORDER [None]
  - HALLUCINATION, VISUAL [None]
  - MALAISE [None]
  - DIZZINESS [None]
  - SENSATION OF HEAVINESS [None]
  - MOTOR DYSFUNCTION [None]
